FAERS Safety Report 5096745-3 (Version None)
Quarter: 2006Q3

REPORT INFORMATION
  Report Type: 
  Country: None (occurrence: None)
  Receive Date: 20060831
  Receipt Date: 20060818
  Transmission Date: 20061208
  Serious: Yes (Other)
  Sender: FDA-Public Use
  Company Number: CA-2006-004113

PATIENT
  Age: 56 Year
  Sex: Male

DRUGS (2)
  1. BETASERON [Suspect]
     Indication: PRIMARY PROGRESSIVE MULTIPLE SCLEROSIS
     Dosage: 8 MIU, UNK, SUBCUTANEOUS
     Route: 058
     Dates: start: 20060213
  2. TYLENOL W/ CODEINE NO. 3 [Concomitant]

REACTIONS (2)
  - DEMENTIA [None]
  - INFLUENZA LIKE ILLNESS [None]
